FAERS Safety Report 14947092 (Version 1)
Quarter: 2018Q2

REPORT INFORMATION
  Report Type: Report from Study
  Country: CR (occurrence: CR)
  Receive Date: 20180529
  Receipt Date: 20180529
  Transmission Date: 20180711
  Serious: Yes (Death, Other)
  Sender: FDA-Public Use
  Company Number: CR-BAYER-2018-096941

PATIENT
  Sex: Male

DRUGS (1)
  1. ASPIRIN. [Suspect]
     Active Substance: ASPIRIN
     Dosage: UNK
     Dates: start: 2002, end: 2012

REACTIONS (2)
  - Gastric ulcer [None]
  - Death [Fatal]

NARRATIVE: CASE EVENT DATE: 2012
